FAERS Safety Report 10684111 (Version 2)
Quarter: 2015Q1

REPORT INFORMATION
  Report Type: Report from Study
  Country: US (occurrence: US)
  Receive Date: 20141231
  Receipt Date: 20150210
  Transmission Date: 20150720
  Serious: Yes (Hospitalization, Other)
  Sender: FDA-Public Use
  Company Number: US-AMGEN-USASL2014101370

PATIENT
  Age: 48 Year
  Sex: Male

DRUGS (1)
  1. ENBREL [Suspect]
     Active Substance: ETANERCEPT
     Indication: ANKYLOSING SPONDYLITIS
     Dosage: 50 MG, QWK
     Route: 058
     Dates: start: 20131201

REACTIONS (6)
  - Mental status changes [Recovered/Resolved]
  - Unresponsive to stimuli [Recovered/Resolved]
  - Hypertensive crisis [Unknown]
  - Blood glucose increased [Unknown]
  - Blood pressure increased [Recovered/Resolved]
  - Impaired healing [Not Recovered/Not Resolved]

NARRATIVE: CASE EVENT DATE: 201412
